FAERS Safety Report 9458542 (Version 1)
Quarter: 2013Q3

REPORT INFORMATION
  Report Type: Spontaneous
  Country: US (occurrence: US)
  Receive Date: 20130814
  Receipt Date: 20130814
  Transmission Date: 20140515
  Serious: Yes (Other)
  Sender: FDA-Public Use
  Company Number: US-TEVA-425130USA

PATIENT
  Sex: Female

DRUGS (2)
  1. QVAR [Suspect]
  2. PROAIR HFA [Suspect]

REACTIONS (1)
  - Pneumonia [Unknown]
